FAERS Safety Report 4309278-6 (Version None)
Quarter: 2004Q1

REPORT INFORMATION
  Report Type: 
  Country: None (occurrence: None)
  Receive Date: 20040301
  Receipt Date: 20040213
  Transmission Date: 20041129
  Serious: Yes (Hospitalization)
  Sender: FDA-Public Use
  Company Number: 2003-FF-00030FF

PATIENT
  Age: 46 Year
  Sex: Male

DRUGS (5)
  1. VIRAMUNE [Suspect]
     Indication: HIV INFECTION
     Dosage: PO
     Route: 048
     Dates: start: 20000101
  2. COMBIVIR [Concomitant]
  3. BRONCHODUAL (DUOVENT) (NR) (IPRATROPIUM BROMID, FENOTEROL-HBR) [Concomitant]
  4. ORELOX (CEFPODOXIME PROXETIL) (NR) [Concomitant]
  5. NASACORT (TRIAMCINOLONE ACETONIDE) (NR) [Concomitant]

REACTIONS (10)
  - ANAEMIA MACROCYTIC [None]
  - BIOPSY BONE MARROW ABNORMAL [None]
  - COOMBS POSITIVE HAEMOLYTIC ANAEMIA [None]
  - DRUG TOXICITY [None]
  - HEADACHE [None]
  - LOSS OF CONSCIOUSNESS [None]
  - LYMPHADENOPATHY [None]
  - MALAISE [None]
  - PLASMACYTOSIS [None]
  - RHINITIS [None]
